FAERS Safety Report 10891786 (Version 1)
Quarter: 2015Q1

REPORT INFORMATION
  Report Type: Spontaneous
  Country: US (occurrence: US)
  Receive Date: 20150306
  Receipt Date: 20150306
  Transmission Date: 20150721
  Serious: Yes (Hospitalization)
  Sender: FDA-Public Use
  Company Number: US-JNJFOC-20150217830

PATIENT
  Age: 60 Year
  Sex: Female
  Weight: 58.06 kg

DRUGS (2)
  1. FENTANYL TRANSDERMAL SYSTEM [Suspect]
     Active Substance: FENTANYL
     Indication: PAIN
     Route: 062
     Dates: start: 2015
  2. FENTANYL TRANSDERMAL SYSTEM [Suspect]
     Active Substance: FENTANYL
     Indication: PAIN
     Route: 062

REACTIONS (7)
  - Neck surgery [Recovered/Resolved]
  - Spinal operation [Recovered/Resolved]
  - Product quality issue [Unknown]
  - Visual impairment [Not Recovered/Not Resolved]
  - Poor quality drug administered [Unknown]
  - Activities of daily living impaired [Unknown]
  - Drug ineffective [Unknown]

NARRATIVE: CASE EVENT DATE: 201410
